FAERS Safety Report 9396041 (Version 1)
Quarter: 2013Q3

REPORT INFORMATION
  Report Type: Spontaneous
  Country: DE (occurrence: FR)
  Receive Date: 20130711
  Receipt Date: 20130711
  Transmission Date: 20140515
  Serious: Yes (Hospitalization)
  Sender: FDA-Public Use
  Company Number: FR-FRI-1000046571

PATIENT
  Age: 78 Year
  Sex: Female

DRUGS (7)
  1. MEMANTINE [Suspect]
     Indication: DEMENTIA ALZHEIMER^S TYPE
     Route: 048
  2. TEMESTA [Suspect]
     Route: 048
     Dates: end: 20130610
  3. RISPERIDONE [Suspect]
     Indication: AGITATION
     Route: 048
     Dates: end: 20130610
  4. ZOPICLONE [Suspect]
     Route: 048
     Dates: end: 20130610
  5. DOLIPRANE [Suspect]
     Indication: PAIN
     Route: 048
     Dates: end: 20130610
  6. KARDEGIC [Concomitant]
     Route: 048
     Dates: end: 20130610
  7. SERESTA [Concomitant]
     Route: 048
     Dates: end: 20130610

REACTIONS (4)
  - Drug-induced liver injury [Recovering/Resolving]
  - Hepatocellular injury [Recovering/Resolving]
  - Cholestasis [Recovering/Resolving]
  - Jaundice cholestatic [Recovering/Resolving]
